FAERS Safety Report 8219137-4 (Version None)
Quarter: 2012Q1

REPORT INFORMATION
  Report Type: 
  Country: None (occurrence: None)
  Receive Date: 20120319
  Receipt Date: 20120309
  Transmission Date: 20120608
  Serious: Yes (Hospitalization)
  Sender: FDA-Public Use
  Company Number: JP-VERTEX PHARMACEUTICALS INC.-AE-2012-003528

PATIENT
  Age: 65 Year
  Sex: Male

DRUGS (8)
  1. REBETOL [Concomitant]
     Route: 048
     Dates: start: 20120214, end: 20120228
  2. MYSER [Concomitant]
  3. TELAVIC (TELAPREVIR) [Suspect]
     Indication: HEPATITIS C
     Route: 048
     Dates: start: 20120117, end: 20120228
  4. REBETOL [Concomitant]
     Indication: HEPATITIS C
     Route: 048
     Dates: start: 20120117, end: 20120206
  5. REBETOL [Concomitant]
     Route: 048
     Dates: start: 20120207, end: 20120213
  6. XYZAL [Concomitant]
  7. PEG-INTRON [Concomitant]
     Indication: HEPATITIS C
     Route: 058
     Dates: start: 20120117, end: 20120221
  8. TALION [Concomitant]

REACTIONS (10)
  - EOSINOPHIL COUNT INCREASED [None]
  - LYMPHADENOPATHY [None]
  - STOMATITIS [None]
  - RASH [None]
  - PRURITUS [None]
  - OEDEMA PERIPHERAL [None]
  - HYPERURICAEMIA [None]
  - PYREXIA [None]
  - HAEMOGLOBIN DECREASED [None]
  - SWELLING FACE [None]
